FAERS Safety Report 7676339-3 (Version None)
Quarter: 2011Q3

REPORT INFORMATION
  Report Type: 
  Country: None (occurrence: None)
  Receive Date: 20110811
  Receipt Date: 20110808
  Transmission Date: 20111222
  Serious: No
  Sender: FDA-Public Use
  Company Number: US-PFIZER INC-2011154008

PATIENT
  Sex: Female

DRUGS (2)
  1. LIPITOR [Suspect]
     Dosage: 10 MG, 1X/DAY
  2. NORVASC [Suspect]
     Dosage: UNK

REACTIONS (2)
  - DRUG DISPENSING ERROR [None]
  - ARTHRALGIA [None]
